FAERS Safety Report 7053518-X (Version None)
Quarter: 2010Q4

REPORT INFORMATION
  Report Type: 
  Country: None (occurrence: None)
  Receive Date: 20101015
  Receipt Date: 20101007
  Transmission Date: 20110411
  Serious: Yes (Other)
  Sender: FDA-Public Use
  Company Number: 2010SP054027

PATIENT
  Age: 79 Year
  Sex: Female

DRUGS (2)
  1. ASMANEX TWISTHALER [Suspect]
     Indication: PRODUCT USED FOR UNKNOWN INDICATION
     Dosage: INH
     Route: 055
  2. ITRIZOLE [Concomitant]

REACTIONS (2)
  - ABDOMINAL DISCOMFORT [None]
  - MELAENA [None]
